FAERS Safety Report 4470719-5 (Version None)
Quarter: 2004Q4

REPORT INFORMATION
  Report Type: 
  Country: None (occurrence: None)
  Receive Date: 20041006
  Receipt Date: 20040929
  Transmission Date: 20050328
  Serious: Yes (Life-Threatening)
  Sender: FDA-Public Use
  Company Number: 2004AP05080

PATIENT
  Age: 61 Year
  Sex: Male

DRUGS (8)
  1. TENORMIN [Suspect]
     Indication: AORTIC ANEURYSM
     Dosage: 50 MG DAILY PO
     Route: 048
     Dates: start: 20031029, end: 20031029
  2. TENORMIN [Suspect]
     Indication: HYPERTENSION
     Dosage: 50 MG DAILY PO
     Route: 048
     Dates: start: 20031029, end: 20031029
  3. TENORMIN [Suspect]
     Indication: RENAL FAILURE CHRONIC
     Dosage: 50 MG DAILY PO
     Route: 048
     Dates: start: 20031029, end: 20031029
  4. PERDIPINE [Concomitant]
  5. NITROGLYCERIN [Concomitant]
  6. CARDENALIN [Concomitant]
  7. DIART [Concomitant]
  8. ADALAT [Concomitant]

REACTIONS (8)
  - CARDIAC FAILURE ACUTE [None]
  - DEPRESSED LEVEL OF CONSCIOUSNESS [None]
  - HAEMODIALYSIS [None]
  - HEART RATE DECREASED [None]
  - OLIGURIA [None]
  - OVERDOSE [None]
  - OXYGEN SATURATION DECREASED [None]
  - RENAL FAILURE ACUTE [None]
